FAERS Safety Report 8509333-0 (Version None)
Quarter: 2012Q3

REPORT INFORMATION
  Report Type: 
  Country: None (occurrence: None)
  Receive Date: 20120713
  Receipt Date: 20120711
  Transmission Date: 20120928
  Serious: Yes (Hospitalization)
  Sender: FDA-Public Use
  Company Number: FR-ROCHE-1087290

PATIENT
  Age: 68 Year
  Sex: Female

DRUGS (9)
  1. ASPIRIN [Concomitant]
  2. CACIT D3 [Concomitant]
  3. NEXIUM [Concomitant]
  4. FOLIC ACID [Concomitant]
  5. PREDNISONE TAB [Concomitant]
  6. IMOVANE [Concomitant]
  7. ACTEMRA [Suspect]
     Indication: PRODUCT USED FOR UNKNOWN INDICATION
     Route: 042
     Dates: start: 20120420, end: 20120521
  8. VITAMIN K TAB [Concomitant]
  9. METHOTREXATE [Suspect]
     Indication: PRODUCT USED FOR UNKNOWN INDICATION
     Dates: start: 20120201

REACTIONS (1)
  - CYTOLYTIC HEPATITIS [None]
